FAERS Safety Report 5167657-1 (Version None)
Quarter: 2006Q4

REPORT INFORMATION
  Report Type: 
  Country: None (occurrence: None)
  Receive Date: 20061201
  Receipt Date: 20061201
  Transmission Date: 20070319
  Serious: No
  Sender: FDA-Public Use
  Company Number: None

PATIENT
  Age: 24 Year
  Sex: Female

DRUGS (4)
  1. SENSORCAINE [Suspect]
     Indication: SPINAL ANAESTHESIA
     Dosage: 9.75 MG ONCE IT
     Route: 037
  2. FENTANYL [Suspect]
     Indication: SPINAL ANAESTHESIA
     Dosage: 9.75 MG ONCE IT
     Route: 037
  3. EPINEPHRINE [Suspect]
  4. MORPHINE [Suspect]

REACTIONS (3)
  - DISCOMFORT [None]
  - DRUG EFFECT DECREASED [None]
  - DRUG EXPOSURE DURING PREGNANCY [None]
